FAERS Safety Report 13090394 (Version 1)
Quarter: 2017Q1

REPORT INFORMATION
  Report Type: Spontaneous
  Country: RS (occurrence: RS)
  Receive Date: 20170105
  Receipt Date: 20170105
  Transmission Date: 20170428
  Serious: Yes (Other)
  Sender: FDA-Public Use
  Company Number: PHHY2016RS178485

PATIENT
  Age: 66 Year
  Sex: Female

DRUGS (1)
  1. AIRFLUSAL FORSPIRO [Suspect]
     Active Substance: FLUTICASONE PROPIONATE\SALMETEROL XINAFOATE
     Indication: ASTHMA
     Route: 055
     Dates: start: 201611, end: 201611

REACTIONS (4)
  - Tongue oedema [Recovered/Resolved]
  - Oedema mouth [Recovered/Resolved]
  - Sputum retention [Recovered/Resolved]
  - Pharyngeal oedema [Recovered/Resolved]

NARRATIVE: CASE EVENT DATE: 201611
